FAERS Safety Report 5774764-9 (Version None)
Quarter: 2008Q2

REPORT INFORMATION
  Report Type: 
  Country: None (occurrence: None)
  Receive Date: 20080616
  Receipt Date: 20080616
  Transmission Date: 20081010
  Serious: No
  Sender: FDA-Public Use
  Company Number: None

PATIENT
  Age: 57 Year
  Sex: Female
  Weight: 61.2356 kg

DRUGS (1)
  1. CHANTIX [Suspect]
     Indication: SMOKING CESSATION THERAPY
     Dosage: 2X DAILY
     Dates: start: 20070901, end: 20071101

REACTIONS (5)
  - ANHEDONIA [None]
  - CRYING [None]
  - LOSS OF LIBIDO [None]
  - PERSONALITY CHANGE [None]
  - THINKING ABNORMAL [None]
